FAERS Safety Report 15632400 (Version 3)
Quarter: 2019Q1

REPORT INFORMATION
  Report Type: Spontaneous
  Country: FR (occurrence: FR)
  Receive Date: 20181119
  Receipt Date: 20190220
  Transmission Date: 20190417
  Serious: Yes (Death, Life-Threatening, Hospitalization, Other)
  Sender: FDA-Public Use
  Company Number: FR-JNJFOC-20181122438

PATIENT
  Age: 9 Month
  Sex: Male
  Weight: 10 kg

DRUGS (1)
  1. FENTANYL. [Suspect]
     Active Substance: FENTANYL
     Indication: PRODUCT USED FOR UNKNOWN INDICATION
     Route: 048

REACTIONS (9)
  - Accidental overdose [Fatal]
  - Incorrect disposal of product [Not Recovered/Not Resolved]
  - Brain oedema [Fatal]
  - Vomiting [Unknown]
  - Hepatic congestion [Fatal]
  - Accidental exposure to product by child [Fatal]
  - Toxicity to various agents [Fatal]
  - Respiratory arrest [Fatal]
  - Pleural effusion [Fatal]
